FAERS Safety Report 11097890 (Version 1)
Quarter: 2015Q2

REPORT INFORMATION
  Report Type: Spontaneous
  Country: US (occurrence: None)
  Receive Date: 20150507
  Receipt Date: 20150507
  Transmission Date: 20150821
  Serious: No
  Sender: FDA-Public Use
  Company Number: None

PATIENT
  Age: 78 Year
  Sex: Female

DRUGS (1)
  1. SUTENT [Suspect]
     Active Substance: SUNITINIB MALATE
     Indication: RENAL CANCER
     Dosage: 25MG DAILY, 21 DAYS ON 14 DAYS OFF ORAL
     Route: 048

REACTIONS (2)
  - Stomatitis [None]
  - Pain in extremity [None]

NARRATIVE: CASE EVENT DATE: 20150506
